FAERS Safety Report 8798368 (Version 1)
Quarter: 2012Q4

REPORT INFORMATION
  Report Type: 
  Country: US (occurrence: US)
  Receive Date: 20120920
  Receipt Date: 20120920
  Transmission Date: 20130627
  Serious: Yes (Hospitalization)
  Sender: FDA-Public Use
  Company Number: US-009507513-1209USA005288

PATIENT
  Age: 54 Year
  Sex: Female

DRUGS (3)
  1. VICTRELIS [Suspect]
     Dosage: 4 DF, tid
     Route: 048
  2. REBETOL [Suspect]
  3. PEGASYS [Concomitant]

REACTIONS (3)
  - Blood count abnormal [Unknown]
  - Rash [Unknown]
  - Skin infection [Unknown]
